FAERS Safety Report 11131367 (Version 1)
Quarter: 2015Q2

REPORT INFORMATION
  Report Type: Spontaneous
  Country: US (occurrence: US)
  Receive Date: 20150522
  Receipt Date: 20150522
  Transmission Date: 20150821
  Serious: Yes (Other)
  Sender: FDA-Public Use
  Company Number: US-BAYER-2015-258478

PATIENT
  Sex: Male

DRUGS (1)
  1. YAZ [Suspect]
     Active Substance: DROSPIRENONE\ETHINYL ESTRADIOL

REACTIONS (2)
  - Scrotal haematocoele [Recovered/Resolved]
  - Genital hypoaesthesia [Recovered/Resolved]

NARRATIVE: CASE EVENT DATE: 20140817
